FAERS Safety Report 6446483-7 (Version None)
Quarter: 2009Q4

REPORT INFORMATION
  Report Type: 
  Country: None (occurrence: None)
  Receive Date: 20091116
  Receipt Date: 20091103
  Transmission Date: 20100525
  Serious: Yes (Hospitalization)
  Sender: FDA-Public Use
  Company Number: 20090505

PATIENT
  Age: 16 Year
  Sex: Male

DRUGS (6)
  1. DEXAMETHASONE SODIUM PHOSPHATE [Suspect]
     Indication: ACUTE PROMYELOCYTIC LEUKAEMIA
     Dosage: INJECTION NOS
  2. CYTARABINE [Concomitant]
  3. THIOGUANINE [Concomitant]
  4. CYTARABINE [Concomitant]
  5. DAUNORUBICIN HCL [Concomitant]
  6. ETOPOSIDE [Concomitant]

REACTIONS (2)
  - RENAL CANCER [None]
  - SUDDEN DEATH [None]
